FAERS Safety Report 10153677 (Version 2)
Quarter: 2014Q2

REPORT INFORMATION
  Report Type: Report from Study
  Country: DE (occurrence: DE)
  Receive Date: 20140506
  Receipt Date: 20140604
  Transmission Date: 20141212
  Serious: Yes (Life-Threatening, Hospitalization, Other)
  Sender: FDA-Public Use
  Company Number: DE-AMGEN-DEUNI2014031163

PATIENT
  Age: 73 Year
  Sex: Female

DRUGS (8)
  1. DENOSUMAB [Suspect]
     Indication: PROPHYLAXIS
     Dosage: 120 MG, Q4WK
     Route: 058
     Dates: start: 20140305
  2. NEULASTA [Concomitant]
     Dosage: 1 X
     Route: 058
     Dates: start: 20140320
  3. CALCIMAGON D3 [Concomitant]
     Dosage: UNK UNK, QD
     Route: 048
     Dates: start: 20140305
  4. ONDANSETRON [Concomitant]
     Dosage: 8 MG, QD
     Route: 042
     Dates: start: 20140319
  5. DEXAMETHASONE [Concomitant]
     Dosage: 12 MG, QD
     Route: 042
     Dates: start: 20140319
  6. METAMIZOLE [Concomitant]
     Dosage: 4 X 30/DAY
     Route: 048
     Dates: start: 20140415
  7. EMEND                              /01627301/ [Concomitant]
     Dosage: 125 MG, UNK
     Route: 048
     Dates: start: 20140319, end: 20140321
  8. ZOLPIDEM                           /00914902/ [Concomitant]

REACTIONS (1)
  - Pain [Recovered/Resolved]
